FAERS Safety Report 17132691 (Version 1)
Quarter: 2019Q4

REPORT INFORMATION
  Report Type: Report from Study
  Country: None (occurrence: CA)
  Receive Date: 20191210
  Receipt Date: 20191210
  Transmission Date: 20200122
  Serious: Yes (Other)
  Sender: FDA-Public Use
  Company Number: CA-ABBVIE-19K-028-3184764-00

PATIENT
  Age: 68 Year
  Sex: Male

DRUGS (1)
  1. HUMIRA [Suspect]
     Active Substance: ADALIMUMAB
     Indication: COLITIS ULCERATIVE
     Route: 058
     Dates: start: 20161130

REACTIONS (6)
  - Medical device site infection [Unknown]
  - Colitis ulcerative [Recovered/Resolved]
  - Medical device site inflammation [Not Recovered/Not Resolved]
  - Medical device site haemorrhage [Not Recovered/Not Resolved]
  - Medical device pain [Unknown]
  - Somnolence [Not Recovered/Not Resolved]

NARRATIVE: CASE EVENT DATE: 201911
